FAERS Safety Report 7190524-9 (Version None)
Quarter: 2010Q4

REPORT INFORMATION
  Report Type: 
  Country: None (occurrence: None)
  Receive Date: 20101213
  Receipt Date: 20101208
  Transmission Date: 20110411
  Serious: Yes (Hospitalization, Disabling, Other)
  Sender: FDA-Public Use
  Company Number: GER/UKI/10/0016701

PATIENT
  Age: 89 Year
  Sex: Male

DRUGS (4)
  1. CLOPIDOGREL [Suspect]
     Indication: ACUTE CORONARY SYNDROME
     Dosage: ORAL
     Route: 048
  2. ASPIRIN [Suspect]
     Indication: ACUTE CORONARY SYNDROME
  3. DALTEPARIN SODIUM [Suspect]
     Indication: ACUTE CORONARY SYNDROME
  4. INNOHEP [Suspect]
     Indication: ACUTE CORONARY SYNDROME

REACTIONS (13)
  - ANEURYSM RUPTURED [None]
  - AREFLEXIA [None]
  - ARTHRALGIA [None]
  - HYPOAESTHESIA [None]
  - JOINT STIFFNESS [None]
  - MUSCLE HAEMORRHAGE [None]
  - MUSCULAR WEAKNESS [None]
  - MUSCULOSKELETAL PAIN [None]
  - NERVE COMPRESSION [None]
  - PERIPHERAL ARTERY ANEURYSM [None]
  - RETROPERITONEAL HAEMORRHAGE [None]
  - SCIATICA [None]
  - THROMBOSIS [None]
